FAERS Safety Report 25040107 (Version 2)
Quarter: 2025Q1

REPORT INFORMATION
  Report Type: Other
  Country: FR (occurrence: FR)
  Receive Date: 20250305
  Receipt Date: 20250331
  Transmission Date: 20250409
  Serious: Yes (Hospitalization)
  Sender: ZYDUS PHARM
  Company Number: None

PATIENT

DRUGS (3)
  1. AZITHROMYCIN [Interacting]
     Active Substance: AZITHROMYCIN
     Indication: Influenza like illness
     Route: 048
     Dates: start: 20250103
  2. WARFARIN SODIUM [Interacting]
     Active Substance: WARFARIN SODIUM
     Indication: Atrial fibrillation
     Route: 048
     Dates: start: 19990101, end: 20250109
  3. WARFARIN SODIUM [Interacting]
     Active Substance: WARFARIN SODIUM
     Indication: Coagulopathy

REACTIONS (2)
  - Muscle haemorrhage [Recovered/Resolved]
  - International normalised ratio increased [Recovered/Resolved]

NARRATIVE: CASE EVENT DATE: 20250109
